FAERS Safety Report 13066052 (Version 1)
Quarter: 2016Q4

REPORT INFORMATION
  Report Type: Spontaneous
  Country: US (occurrence: US)
  Receive Date: 20161227
  Receipt Date: 20161227
  Transmission Date: 20170207
  Serious: Yes (Other)
  Sender: FDA-Public Use
  Company Number: US-TEVA-723488USA

PATIENT
  Sex: Female

DRUGS (2)
  1. ANASTROZOLE. [Suspect]
     Active Substance: ANASTROZOLE
     Route: 065
  2. IBRANCE [Suspect]
     Active Substance: PALBOCICLIB
     Route: 065

REACTIONS (1)
  - Neutropenia [Unknown]
